FAERS Safety Report 13298807 (Version 1)
Quarter: 2017Q1

REPORT INFORMATION
  Report Type: Spontaneous
  Country: FR (occurrence: FR)
  Receive Date: 20170306
  Receipt Date: 20170306
  Transmission Date: 20170428
  Serious: Yes (Hospitalization)
  Sender: FDA-Public Use
  Company Number: FR-PFIZER INC-2017093339

PATIENT
  Age: 83 Year
  Sex: Female

DRUGS (1)
  1. CORDARONE [Suspect]
     Active Substance: AMIODARONE HYDROCHLORIDE
     Indication: ATRIAL FIBRILLATION
     Dosage: UNK
     Route: 048
     Dates: end: 201601

REACTIONS (2)
  - Acute pulmonary oedema [Recovering/Resolving]
  - Hyperthyroidism [Unknown]

NARRATIVE: CASE EVENT DATE: 201601
